FAERS Safety Report 9208593 (Version 2)
Quarter: 2013Q3

REPORT INFORMATION
  Report Type: Spontaneous
  Country: US (occurrence: US)
  Receive Date: 20130404
  Receipt Date: 20130715
  Transmission Date: 20140515
  Serious: No
  Sender: FDA-Public Use
  Company Number: US-BIOGENIDEC-2013BI030681

PATIENT
  Sex: Female

DRUGS (2)
  1. AVONEX [Suspect]
     Indication: MULTIPLE SCLEROSIS
     Route: 030
     Dates: start: 20130315
  2. ALEVE [Concomitant]
     Indication: PREMEDICATION

REACTIONS (3)
  - Irritability [Recovered/Resolved]
  - Pain [Recovered/Resolved]
  - Insomnia [Unknown]
